FAERS Safety Report 9145298 (Version 1)
Quarter: 2013Q1

REPORT INFORMATION
  Report Type: Spontaneous
  Country: US (occurrence: None)
  Receive Date: 20130226
  Receipt Date: 20130226
  Transmission Date: 20140127
  Serious: Yes (Hospitalization)
  Sender: FDA-Public Use
  Company Number: None

PATIENT
  Age: 48 Year
  Sex: Female

DRUGS (2)
  1. RISPERDAL [Suspect]
     Indication: OBSESSIVE-COMPULSIVE DISORDER
     Dosage: 50MG Q 2 WEEKS IM
     Route: 030
     Dates: start: 201306
  2. RISPERDAL [Suspect]
     Indication: SCHIZOPHRENIA
     Dosage: 50MG Q 2 WEEKS IM
     Route: 030
     Dates: start: 201306

REACTIONS (1)
  - Drug hypersensitivity [None]
